FAERS Safety Report 4937699-7 (Version None)
Quarter: 2006Q1

REPORT INFORMATION
  Report Type: 
  Country: None (occurrence: None)
  Receive Date: 20060306
  Receipt Date: 20060228
  Transmission Date: 20060701
  Serious: Yes (Death, Other)
  Sender: FDA-Public Use
  Company Number: 200611142BWH

PATIENT
  Age: 60 Year
  Sex: Female

DRUGS (2)
  1. TRASYLOL [Suspect]
     Indication: CORONARY ARTERY SURGERY
     Dosage: 1 ML, ONCE; INTRAVENOUS, 100 ML, ONCE; INTRAVENOUS
     Route: 042
     Dates: start: 20010101
  2. TRASYLOL [Suspect]
     Indication: CORONARY ARTERY SURGERY
     Dosage: 1 ML, ONCE; INTRAVENOUS, 100 ML, ONCE; INTRAVENOUS
     Route: 042
     Dates: start: 20010101

REACTIONS (2)
  - ELECTROMECHANICAL DISSOCIATION [None]
  - PULMONARY EMBOLISM [None]
